FAERS Safety Report 18025219 (Version 3)
Quarter: 2020Q3

REPORT INFORMATION
  Report Type: Spontaneous
  Country: US (occurrence: US)
  Receive Date: 20200715
  Receipt Date: 20200813
  Transmission Date: 20201103
  Serious: Yes (Other)
  Sender: FDA-Public Use
  Company Number: US-PFIZER INC-2020269802

PATIENT
  Age: 34 Year
  Sex: Female
  Weight: 55.34 kg

DRUGS (1)
  1. DEPO?PROVERA [Suspect]
     Active Substance: MEDROXYPROGESTERONE ACETATE
     Dosage: UNK
     Dates: start: 1996

REACTIONS (5)
  - Amenorrhoea [Unknown]
  - Body height decreased [Unknown]
  - Osteopenia [Unknown]
  - Diabetes mellitus [Unknown]
  - Osteoporosis [Unknown]

NARRATIVE: CASE EVENT DATE: 2004
